FAERS Safety Report 16015931 (Version 1)
Quarter: 2019Q1

REPORT INFORMATION
  Report Type: Spontaneous
  Country: ES (occurrence: ES)
  Receive Date: 20190228
  Receipt Date: 20190228
  Transmission Date: 20190418
  Serious: Yes (Hospitalization)
  Sender: FDA-Public Use
  Company Number: ES-ACCORD-109555

PATIENT
  Age: 83 Year
  Sex: Female

DRUGS (3)
  1. HALOPERIDOL. [Interacting]
     Active Substance: HALOPERIDOL
     Indication: AGITATION
     Dosage: ALSO RECEIVED FROM 11-JUN-2018 TO 25-JUN-2018(15 DAYS) AT DOSE OF 1 MG THROUGH ORAL ROUTE
     Route: 058
     Dates: start: 20180617, end: 20180625
  2. TRAZODONE [Interacting]
     Active Substance: TRAZODONE HYDROCHLORIDE
     Indication: INSOMNIA
     Route: 048
     Dates: start: 20180611, end: 20180623
  3. QUETIAPINE. [Suspect]
     Active Substance: QUETIAPINE
     Indication: AGITATION
     Route: 048
     Dates: start: 20180611, end: 20180701

REACTIONS (5)
  - Pyrexia [Recovered/Resolved]
  - Drug interaction [Unknown]
  - Dyskinesia [Recovered/Resolved]
  - Muscle rigidity [Recovered/Resolved]
  - Somnolence [Recovered/Resolved]

NARRATIVE: CASE EVENT DATE: 20180622
